FAERS Safety Report 5102959-6 (Version None)
Quarter: 2006Q3

REPORT INFORMATION
  Report Type: 
  Country: None (occurrence: None)
  Receive Date: 20060907
  Receipt Date: 20060817
  Transmission Date: 20061208
  Serious: Yes (Other)
  Sender: FDA-Public Use
  Company Number: DE200608004052

PATIENT
  Sex: Male

DRUGS (1)
  1. STRATTERA [Suspect]
     Indication: ATTENTION DEFICIT/HYPERACTIVITY DISORDER
     Dosage: ORAL
     Route: 048
     Dates: start: 20060701

REACTIONS (3)
  - BLOOD PRESSURE SYSTOLIC INCREASED [None]
  - ELECTROCARDIOGRAM QT PROLONGED [None]
  - HYPERHIDROSIS [None]
